FAERS Safety Report 9679505 (Version 1)
Quarter: 2013Q4

REPORT INFORMATION
  Report Type: Spontaneous
  Country: US (occurrence: US)
  Receive Date: 20131109
  Receipt Date: 20131109
  Transmission Date: 20140711
  Serious: No
  Sender: FDA-Public Use
  Company Number: US-SANOFI-AVENTIS-2013SA063587

PATIENT
  Age: 80 Year
  Sex: Male

DRUGS (2)
  1. ALLEGRA-D [Suspect]
     Route: 048
     Dates: start: 20130610
  2. ALLEGRA-D [Suspect]
     Route: 048
     Dates: start: 20130604, end: 20130610

REACTIONS (3)
  - Prostatomegaly [Not Recovered/Not Resolved]
  - Dysuria [Recovered/Resolved]
  - Therapeutic response decreased [Unknown]
